FAERS Safety Report 5627408-0 (Version None)
Quarter: 2008Q1

REPORT INFORMATION
  Report Type: 
  Country: None (occurrence: None)
  Receive Date: 20080214
  Receipt Date: 20080214
  Transmission Date: 20080703
  Serious: Yes (Other)
  Sender: FDA-Public Use
  Company Number: None

PATIENT
  Sex: Male

DRUGS (1)
  1. LISINOPRIL [Suspect]
     Indication: HYPERTENSION
     Dosage: 1 TAB  -10MG-  QD  PO
     Route: 048
     Dates: start: 20071210, end: 20071228

REACTIONS (1)
  - ANGIOEDEMA [None]
